FAERS Safety Report 6177631-4 (Version None)
Quarter: 2009Q2

REPORT INFORMATION
  Report Type: 
  Country: None (occurrence: None)
  Receive Date: 20090504
  Receipt Date: 20081211
  Transmission Date: 20091009
  Serious: No
  Sender: FDA-Public Use
  Company Number: US-ALEXION-A200800407

PATIENT
  Sex: Female

DRUGS (6)
  1. SOLIRIS [Suspect]
     Indication: PAROXYSMAL NOCTURNAL HAEMOGLOBINURIA
     Dosage: 600 MG, QW
     Route: 042
     Dates: start: 20080901, end: 20081001
  2. SOLIRIS [Suspect]
     Dosage: 900 MG, Q2W
     Route: 042
     Dates: start: 20081001
  3. SYNTHROID [Concomitant]
     Indication: HYPOTHYROIDISM
     Dosage: UNK
     Route: 048
  4. LIPITOR [Concomitant]
     Dosage: UNK
     Route: 048
  5. LEXAPRO [Concomitant]
     Dosage: UNK
     Route: 048
  6. LUNESTA [Concomitant]
     Dosage: UNK
     Route: 048

REACTIONS (1)
  - ORAL HERPES [None]
